FAERS Safety Report 17734771 (Version 1)
Quarter: 2020Q2

REPORT INFORMATION
  Report Type: Spontaneous
  Country: IT (occurrence: IT)
  Receive Date: 20200501
  Receipt Date: 20200501
  Transmission Date: 20200714
  Serious: Yes (Other)
  Sender: FDA-Public Use
  Company Number: IT-MYLANLABS-2020M1042688

PATIENT
  Age: 77 Year
  Sex: Female

DRUGS (9)
  1. ESKIM [Concomitant]
     Active Substance: OMEGA-3 FATTY ACIDS
     Dosage: UNK
  2. VERAPAMIL [Concomitant]
     Active Substance: VERAPAMIL HYDROCHLORIDE
     Dosage: UNK
  3. ZESTRIL [Concomitant]
     Active Substance: LISINOPRIL
     Dosage: UNK
  4. CARDURA [Concomitant]
     Active Substance: DOXAZOSIN MESYLATE
     Dosage: UNK
  5. TIKLID [Concomitant]
     Active Substance: TICLOPIDINE HYDROCHLORIDE
     Dosage: UNK
  6. BRUFEN [Suspect]
     Active Substance: IBUPROFEN
     Indication: SPONDYLITIS
     Dosage: UNK
  7. METFORMIN [Concomitant]
     Active Substance: METFORMIN HYDROCHLORIDE
     Indication: DIABETES MELLITUS
     Dosage: 1500 MILLIGRAM, QD
  8. TORVAST [Concomitant]
     Active Substance: ATORVASTATIN
     Dosage: UNK
  9. DIURESIX                           /01036501/ [Concomitant]
     Active Substance: TORSEMIDE
     Dosage: UNK

REACTIONS (1)
  - Erythema [Unknown]

NARRATIVE: CASE EVENT DATE: 20191227
